FAERS Safety Report 14308181 (Version 2)
Quarter: 2017Q4

REPORT INFORMATION
  Report Type: Spontaneous
  Country: BE (occurrence: BE)
  Receive Date: 20171220
  Receipt Date: 20171221
  Transmission Date: 20180321
  Serious: Yes (Other)
  Sender: FDA-Public Use
  Company Number: BE-LPDUSPRD-20171750

PATIENT
  Age: 80 Year
  Sex: Female

DRUGS (1)
  1. FERINJECT [Suspect]
     Active Substance: FERRIC CARBOXYMALTOSE
     Dosage: 1000 MG
     Route: 041
     Dates: start: 20171109

REACTIONS (3)
  - Haemorrhage [Unknown]
  - Infusion site discolouration [Unknown]
  - Vein discolouration [Unknown]

NARRATIVE: CASE EVENT DATE: 20171206
